FAERS Safety Report 5526472-7 (Version None)
Quarter: 2007Q4

REPORT INFORMATION
  Report Type: 
  Country: None (occurrence: None)
  Receive Date: 20071127
  Receipt Date: 20071112
  Transmission Date: 20080405
  Serious: Yes (Other)
  Sender: FDA-Public Use
  Company Number: FR-AMGEN-UK252276

PATIENT
  Age: 45 Year
  Sex: Female

DRUGS (2)
  1. MIMPARA [Suspect]
     Indication: PRE-EXISTING DISEASE
  2. SODIUM THIOSULFATE [Concomitant]

REACTIONS (3)
  - HAEMODIALYSIS [None]
  - LOW TURNOVER OSTEOPATHY [None]
  - SKIN ULCER [None]
